FAERS Safety Report 5514663-0 (Version None)
Quarter: 2007Q4

REPORT INFORMATION
  Report Type: 
  Country: None (occurrence: None)
  Receive Date: 20071113
  Receipt Date: 20071101
  Transmission Date: 20080405
  Serious: Yes (Other)
  Sender: FDA-Public Use
  Company Number: US-PFIZER INC-2007076028

PATIENT
  Sex: Female

DRUGS (2)
  1. CHANTIX [Suspect]
     Indication: SMOKING CESSATION THERAPY
  2. MOTRIN [Suspect]
     Indication: CHEST PAIN

REACTIONS (5)
  - ARTHRALGIA [None]
  - CHEST EXPANSION DECREASED [None]
  - CHEST PAIN [None]
  - ECG SIGNS OF MYOCARDIAL ISCHAEMIA [None]
  - MYALGIA [None]
